FAERS Safety Report 18689229 (Version 1)
Quarter: 2020Q4

REPORT INFORMATION
  Report Type: Report from Study
  Country: US (occurrence: US)
  Receive Date: 20201231
  Receipt Date: 20201231
  Transmission Date: 20210114
  Serious: Yes (Other)
  Sender: FDA-Public Use
  Company Number: US-JNJFOC-20201244357

PATIENT
  Age: 64 Year
  Sex: Female

DRUGS (3)
  1. SPRAVATO [Suspect]
     Active Substance: ESKETAMINE
     Dates: start: 20201218, end: 20201218
  2. SPRAVATO [Suspect]
     Active Substance: ESKETAMINE
     Dosage: 84MG, 29 TOTAL DOSES
     Dates: start: 20200327, end: 20201113
  3. SPRAVATO [Suspect]
     Active Substance: ESKETAMINE
     Indication: MAJOR DEPRESSION
     Dosage: 56 MG; TOTAL DOSE 1
     Dates: start: 20200324, end: 20200324

REACTIONS (1)
  - Blood pressure increased [Recovered/Resolved]

NARRATIVE: CASE EVENT DATE: 20201218
